FAERS Safety Report 21573663 (Version 2)
Quarter: 2022Q4

REPORT INFORMATION
  Report Type: Spontaneous
  Country: US (occurrence: US)
  Receive Date: 20221109
  Receipt Date: 20221208
  Transmission Date: 20230113
  Serious: Yes (Life-Threatening, Hospitalization)
  Sender: FDA-Public Use
  Company Number: US-TEVA-2022-US-2823498

PATIENT
  Age: 61 Year
  Sex: Female

DRUGS (6)
  1. IVERMECTIN [Suspect]
     Active Substance: IVERMECTIN
     Indication: COVID-19 prophylaxis
     Dosage: 18 MILLIGRAM DAILY; APPROXIMATELY 396MCG/KG
     Route: 065
  2. IVERMECTIN [Suspect]
     Active Substance: IVERMECTIN
     Route: 065
  3. PURE BAKING SODA [Suspect]
     Active Substance: SODIUM BICARBONATE
     Indication: Nausea
     Dosage: INGESTED SPOONFULS OF BAKING SODA MIXED IN WATER MULTIPLE TIMES DAILY
     Route: 048
  4. PURE BAKING SODA [Suspect]
     Active Substance: SODIUM BICARBONATE
     Indication: Diarrhoea
  5. PURE BAKING SODA [Suspect]
     Active Substance: SODIUM BICARBONATE
     Indication: Gastrooesophageal reflux disease
  6. PURE BAKING SODA [Suspect]
     Active Substance: SODIUM BICARBONATE
     Indication: Vomiting

REACTIONS (14)
  - Nausea [Unknown]
  - Vomiting [Unknown]
  - Diarrhoea [Unknown]
  - Gastrooesophageal reflux disease [Unknown]
  - Metabolic alkalosis [Unknown]
  - Hypokalaemia [Unknown]
  - Hypocalcaemia [Unknown]
  - Hypophosphataemia [Unknown]
  - Hypochloraemia [Unknown]
  - Gastric perforation [Unknown]
  - Gastric pneumatosis [Unknown]
  - Intentional product misuse [Unknown]
  - Weight decreased [Unknown]
  - Off label use [Unknown]
